FAERS Safety Report 8272969 (Version 3)
Quarter: 2016Q1

REPORT INFORMATION
  Report Type: Report from Study
  Country: DE (occurrence: DE)
  Receive Date: 20111202
  Receipt Date: 20160218
  Transmission Date: 20160526
  Serious: Yes (Death, Other)
  Sender: FDA-Public Use
  Company Number: DE-ROCHE-1015386

PATIENT
  Age: 53 Year
  Sex: Male

DRUGS (1)
  1. TRASTUZUMAB [Suspect]
     Active Substance: TRASTUZUMAB
     Indication: GASTRIC CANCER
     Route: 042
     Dates: start: 20110510, end: 20111013

REACTIONS (3)
  - Pulmonary fibrosis [Fatal]
  - Pulmonary embolism [Not Recovered/Not Resolved]
  - Bundle branch block right [Unknown]

NARRATIVE: CASE EVENT DATE: 20111024
